FAERS Safety Report 23916699 (Version 1)
Quarter: 2024Q2

REPORT INFORMATION
  Report Type: Spontaneous
  Country: US (occurrence: None)
  Receive Date: 20240529
  Receipt Date: 20240529
  Transmission Date: 20240716
  Serious: Yes (Other)
  Sender: FDA-Public Use
  Company Number: 2024A123273

PATIENT
  Sex: Male

DRUGS (2)
  1. FASLODEX [Suspect]
     Active Substance: FULVESTRANT
  2. RIBOCICLIB [Suspect]
     Active Substance: RIBOCICLIB

REACTIONS (2)
  - Disease progression [Unknown]
  - Vitiligo [Unknown]
